FAERS Safety Report 5600320-9 (Version None)
Quarter: 2007Q4

REPORT INFORMATION
  Report Type: 
  Country: None (occurrence: None)
  Receive Date: 20071227
  Receipt Date: 20061219
  Transmission Date: 20080405
  Serious: Yes (Other)
  Sender: FDA-Public Use
  Company Number: 2006S1000306

PATIENT
  Sex: Male

DRUGS (2)
  1. ACITRETIN [Suspect]
     Indication: PSORIASIS
     Dosage: 25 MG;QD;PO
     Route: 048
     Dates: start: 20060101
  2. ACE INHIBITOR NOS [Concomitant]

REACTIONS (2)
  - DEAFNESS [None]
  - NAUSEA [None]
